FAERS Safety Report 15163929 (Version 3)
Quarter: 2018Q3

REPORT INFORMATION
  Report Type: Spontaneous
  Country: IT (occurrence: IT)
  Receive Date: 20180719
  Receipt Date: 20180904
  Transmission Date: 20181010
  Serious: Yes (Hospitalization)
  Sender: FDA-Public Use
  Company Number: IT-SUN PHARMACEUTICAL INDUSTRIES LTD-2018RR-178786

PATIENT
  Age: 58 Year
  Weight: 46 kg

DRUGS (2)
  1. XELODA [Concomitant]
     Active Substance: CAPECITABINE
     Indication: COLORECTAL ADENOCARCINOMA
     Dosage: 3700 MG, DAILY
     Route: 048
     Dates: start: 20180615
  2. OXALIPLATIN. [Suspect]
     Active Substance: OXALIPLATIN
     Indication: COLORECTAL ADENOCARCINOMA
     Dosage: CYCLICAL
     Route: 041
     Dates: start: 20180615, end: 20180615

REACTIONS (3)
  - Hypersensitivity [Recovered/Resolved]
  - Obstruction [Recovered/Resolved]
  - Tachycardia [Recovered/Resolved]

NARRATIVE: CASE EVENT DATE: 20180616
